FAERS Safety Report 20346634 (Version 1)
Quarter: 2022Q1

REPORT INFORMATION
  Report Type: Report from Study
  Country: US (occurrence: US)
  Receive Date: 20220118
  Receipt Date: 20220118
  Transmission Date: 20220423
  Serious: Yes (Other)
  Sender: FDA-Public Use
  Company Number: US-TAKEDA-US201845602

PATIENT
  Sex: Female
  Weight: 64 kg

DRUGS (7)
  1. CARBAMAZEPINE [Suspect]
     Active Substance: CARBAMAZEPINE
     Indication: Multiple sclerosis
     Dosage: 200 MG, 2X/DAY:BID
     Route: 048
  2. CARBAMAZEPINE [Suspect]
     Active Substance: CARBAMAZEPINE
     Indication: Trigeminal neuralgia
  3. GABAPENTIN [Concomitant]
     Active Substance: GABAPENTIN
  4. LISINOPRIL [Concomitant]
     Active Substance: LISINOPRIL
  5. SIMVASTATIN [Concomitant]
     Active Substance: SIMVASTATIN
  6. AUBAGIO [Concomitant]
     Active Substance: TERIFLUNOMIDE
  7. VITAMIN D3 [Concomitant]
     Active Substance: CHOLECALCIFEROL
     Dosage: 2000 INTERNATIONAL UNIT

REACTIONS (7)
  - Multiple sclerosis [Unknown]
  - Blood sodium decreased [Unknown]
  - Joint swelling [Unknown]
  - Pain [Unknown]
  - Therapeutic product effect incomplete [Unknown]
  - Confusional state [Unknown]
  - Body height decreased [Unknown]
